FAERS Safety Report 20292189 (Version 1)
Quarter: 2022Q1

REPORT INFORMATION
  Report Type: Spontaneous
  Country: US (occurrence: None)
  Receive Date: 20220104
  Receipt Date: 20220104
  Transmission Date: 20220423
  Serious: Yes (Disabling, Other)
  Sender: FDA-Public Use
  Company Number: None

PATIENT
  Age: 58 Year
  Sex: Female
  Weight: 73.35 kg

DRUGS (4)
  1. DULOXETINE [Suspect]
     Active Substance: DULOXETINE
     Indication: Anxiety
     Dosage: OTHER QUANTITY : 1 CAPSULE(S);?
     Route: 048
  2. MAGNESIUM CITRATE [Concomitant]
     Active Substance: MAGNESIUM CITRATE
  3. MAGNESIUM GLYCINATE [Concomitant]
  4. FISH OIL [Concomitant]

REACTIONS (6)
  - Headache [None]
  - Dizziness [None]
  - Vertigo [None]
  - Fatigue [None]
  - Movement disorder [None]
  - Withdrawal syndrome [None]

NARRATIVE: CASE EVENT DATE: 20210429
